FAERS Safety Report 15624714 (Version 1)
Quarter: 2018Q4

REPORT INFORMATION
  Report Type: Spontaneous
  Country: FR (occurrence: FR)
  Receive Date: 20181116
  Receipt Date: 20181116
  Transmission Date: 20190205
  Serious: Yes (Death, Life-Threatening, Hospitalization, Other)
  Sender: FDA-Public Use
  Company Number: FR-ALKEM LABORATORIES LIMITED-FR-ALKEM-2018-09109

PATIENT
  Age: 70 Year
  Sex: Male

DRUGS (17)
  1. IMIPENEM [Concomitant]
     Active Substance: IMIPENEM
     Indication: KLEBSIELLA INFECTION
  2. FUROSEMIDE. [Concomitant]
     Active Substance: FUROSEMIDE
     Indication: PRODUCT USED FOR UNKNOWN INDICATION
     Dosage: UNK
     Route: 065
  3. AMIODARONE [Concomitant]
     Active Substance: AMIODARONE
     Indication: PRODUCT USED FOR UNKNOWN INDICATION
     Dosage: UNK
     Route: 065
  4. CALCIUM HEPARIN [Concomitant]
     Indication: PRODUCT USED FOR UNKNOWN INDICATION
     Dosage: UNK
     Route: 065
  5. RIFAMPICIN [Concomitant]
     Active Substance: RIFAMPIN
     Indication: ENTEROBACTER INFECTION
     Dosage: UNK
     Route: 065
     Dates: start: 20131220
  6. ESOMEPRAZOLE. [Concomitant]
     Active Substance: ESOMEPRAZOLE MAGNESIUM
     Indication: PRODUCT USED FOR UNKNOWN INDICATION
     Dosage: UNK
     Route: 065
  7. LINEZOLID. [Suspect]
     Active Substance: LINEZOLID
     Indication: ENTEROBACTER INFECTION
     Dosage: UNK
     Route: 042
     Dates: start: 20131211
  8. RIFAMPICIN [Concomitant]
     Active Substance: RIFAMPIN
     Indication: KLEBSIELLA INFECTION
  9. NEFOPAM [Concomitant]
     Active Substance: NEFOPAM
     Indication: PRODUCT USED FOR UNKNOWN INDICATION
     Dosage: UNK
     Route: 065
  10. BISOPROLOL [Concomitant]
     Active Substance: BISOPROLOL
     Indication: PRODUCT USED FOR UNKNOWN INDICATION
     Dosage: UNK
     Route: 065
  11. OFLOXACIN. [Concomitant]
     Active Substance: OFLOXACIN
     Indication: KLEBSIELLA INFECTION
  12. PREDNISONE. [Concomitant]
     Active Substance: PREDNISONE
     Indication: PRODUCT USED FOR UNKNOWN INDICATION
     Dosage: UNK
     Route: 065
  13. BROMAZEPAM [Concomitant]
     Active Substance: BROMAZEPAM
     Indication: PRODUCT USED FOR UNKNOWN INDICATION
     Dosage: UNK
     Route: 065
  14. IMIPENEM [Concomitant]
     Active Substance: IMIPENEM
     Indication: ENTEROBACTER INFECTION
     Dosage: UNK
     Route: 065
  15. LINEZOLID. [Suspect]
     Active Substance: LINEZOLID
     Indication: KLEBSIELLA INFECTION
  16. ASPIRIN. [Concomitant]
     Active Substance: ASPIRIN
     Indication: PRODUCT USED FOR UNKNOWN INDICATION
     Dosage: UNK
     Route: 065
  17. OFLOXACIN. [Concomitant]
     Active Substance: OFLOXACIN
     Indication: ENTEROBACTER INFECTION
     Dosage: UNK
     Route: 065
     Dates: start: 20131220

REACTIONS (4)
  - Shock [Fatal]
  - Lactic acidosis [Fatal]
  - Atrioventricular block [Fatal]
  - Multiple organ dysfunction syndrome [Fatal]
